FAERS Safety Report 8543298-0 (Version None)
Quarter: 2012Q3

REPORT INFORMATION
  Report Type: 
  Country: None (occurrence: None)
  Receive Date: 20120716
  Receipt Date: 20120705
  Transmission Date: 20120928
  Serious: Yes (Other)
  Sender: FDA-Public Use
  Company Number: 7144777

PATIENT
  Age: 38 Year
  Sex: Female

DRUGS (4)
  1. THYROZOL (THIAMAZOLE) (THIAMAZOLE) [Suspect]
     Indication: GOITRE
     Dosage: (20 MG,1 IN 1 D)
  2. REBETOL [Suspect]
     Indication: VIRAEMIA
     Dates: end: 20100201
  3. LEVOTHYROXINE SODIUM [Suspect]
     Indication: HYPOTHYROIDISM
     Dosage: (25 MCG, 1 IN 1 D)
  4. COPEGUS [Concomitant]

REACTIONS (4)
  - GRANULOCYTOPENIA [None]
  - BASEDOW'S DISEASE [None]
  - HYPERTHYROIDISM [None]
  - HEPATIC ENZYME INCREASED [None]
